FAERS Safety Report 8578259-9 (Version None)
Quarter: 2012Q3

REPORT INFORMATION
  Report Type: 
  Country: None (occurrence: None)
  Receive Date: 20120808
  Receipt Date: 20120731
  Transmission Date: 20120928
  Serious: Yes (Other)
  Sender: FDA-Public Use
  Company Number: US-BAYER-2012-078680

PATIENT
  Age: 22 Year
  Sex: Female

DRUGS (3)
  1. YASMIN [Suspect]
     Dosage: UNK
  2. EFFEXOR [Concomitant]
     Dosage: 75 MG, UNK
     Route: 048
     Dates: start: 20021011
  3. ARMODAFINIL [Concomitant]
     Dosage: 150 MG, UNK
     Route: 048
     Dates: start: 20020814

REACTIONS (2)
  - PULMONARY EMBOLISM [None]
  - DEEP VEIN THROMBOSIS [None]
